FAERS Safety Report 25802375 (Version 1)
Quarter: 2025Q3

REPORT INFORMATION
  Report Type: Spontaneous
  Country: US (occurrence: None)
  Receive Date: 20250912
  Receipt Date: 20250912
  Transmission Date: 20251021
  Serious: Yes (Death)
  Sender: FDA-CTU
  Company Number: None

PATIENT
  Age: 80 Year
  Sex: Male

DRUGS (1)
  1. TREMFYA [Suspect]
     Active Substance: GUSELKUMAB
     Indication: Psoriasis
     Dosage: 100MG Q4W SUBCUTANEOUS?
     Route: 058
     Dates: start: 20250409, end: 20250912

REACTIONS (1)
  - Death [None]

NARRATIVE: CASE EVENT DATE: 20250912
